FAERS Safety Report 4416261-9 (Version None)
Quarter: 2004Q2

REPORT INFORMATION
  Report Type: 
  Country: None (occurrence: None)
  Receive Date: 20040625
  Receipt Date: 20040330
  Transmission Date: 20050107
  Serious: No
  Sender: FDA-Public Use
  Company Number: 205600

PATIENT
  Age: 56 Year
  Sex: Female

DRUGS (4)
  1. AVASTIN [Suspect]
     Indication: COLORECTAL CANCER METASTATIC
     Dosage: 280 MG, INTRAVENOUS
     Route: 042
     Dates: start: 20040301
  2. FLUOROURACIL [Suspect]
     Indication: COLORECTAL CANCER METASTATIC
     Dosage: INTRAVENOUS
     Route: 042
  3. OXALIPLATIN(OXALIPLATIN) [Suspect]
     Indication: CARCINOMA
     Dosage: INTRAVENOUS
     Route: 042
  4. LEUCOVORIN CALCIUM [Concomitant]

REACTIONS (1)
  - WHITE BLOOD CELL COUNT DECREASED [None]
